FAERS Safety Report 19159061 (Version 2)
Quarter: 2021Q2

REPORT INFORMATION
  Report Type: Report from Study
  Country: AR (occurrence: AR)
  Receive Date: 20210420
  Receipt Date: 20210505
  Transmission Date: 20210717
  Serious: Yes (Hospitalization)
  Sender: FDA-Public Use
  Company Number: AR-TAKEDA-2021TUS024176

PATIENT
  Age: 11 Year
  Sex: Male

DRUGS (1)
  1. IDURSULFASE [Suspect]
     Active Substance: IDURSULFASE
     Indication: PRODUCT USED FOR UNKNOWN INDICATION
     Dosage: 0.5 MILLIGRAM/KILOGRAM, Q2WEEKS
     Route: 042

REACTIONS (3)
  - Dyspnoea [Unknown]
  - Cough [Unknown]
  - Parosmia [Unknown]

NARRATIVE: CASE EVENT DATE: 20210410
